FAERS Safety Report 7920199 (Version 3)
Quarter: 2012Q4

REPORT INFORMATION
  Report Type: 
  Country: US (occurrence: US)
  Receive Date: 20110429
  Receipt Date: 20120928
  Transmission Date: 20130627
  Serious: Yes (Hospitalization, Other)
  Sender: FDA-Public Use
  Company Number: US-BAYER-2011-033563

PATIENT
  Age: 22 Year
  Sex: Female
  Weight: 52 kg

DRUGS (29)
  1. YASMIN [Suspect]
     Indication: ACNE
     Dosage: UNK
     Dates: start: 200610, end: 200807
  2. OCELLA [Suspect]
     Indication: ACNE
     Dosage: UNK
     Dates: start: 200810, end: 200902
  3. YAZ [Suspect]
     Indication: ACNE
     Dosage: UNK
     Dates: start: 200610, end: 2009
  4. REMICADE [Concomitant]
  5. IMURAN [Concomitant]
     Dosage: 125 mg, UNK
  6. POTASSIUM CHLORIDE [Concomitant]
     Dosage: 20 mg, UNK
  7. VITAMIN C [Concomitant]
     Dosage: UNK
     Dates: start: 2005
  8. VITAMIN D [Concomitant]
     Dosage: 400 mg, UNK
  9. FISH OIL [Concomitant]
  10. PREDNISONE [Concomitant]
     Indication: CROHN^S DISEASE
     Dosage: 40 mg, UNK
     Dates: start: 20050628, end: 20110316
  11. IRON [Concomitant]
  12. ALDOSTERONE ANTAGONISTS [Concomitant]
  13. POTASSIUM [POTASSIUM] [Concomitant]
     Dosage: 20 mEq, UNK
     Dates: start: 2004, end: 20091221
  14. ASACOL [Concomitant]
     Indication: CROHN^S DISEASE
     Dosage: 400 mg, UNK
     Dates: start: 20050219, end: 20060908
  15. FOLIC ACID [Concomitant]
     Indication: CROHN^S DISEASE
     Dosage: 1 mg, UNK
     Dates: start: 20050628, end: 20110316
  16. FOSAMAX [Concomitant]
     Indication: PROPHYLAXIS
     Dosage: 70 mg, UNK
     Dates: start: 20050628, end: 20071231
  17. HYDROCODONE W/APAP [Concomitant]
     Dosage: UNK
     Dates: start: 20051103, end: 20101030
  18. FLORAQUIN [DIIODOHYDROXYQUINOLINE] [Concomitant]
     Indication: MEDICAL DIET
     Dosage: UNK
     Dates: start: 20051110, end: 20080102
  19. POLY-IRON [POLYSACCHARIDE-IRON COMPLEX] [Concomitant]
     Dosage: 150 mg, UNK
     Dates: start: 20051110, end: 20100713
  20. AZATHIOPRINE [Concomitant]
     Indication: CROHN^S DISEASE
     Dosage: 50 mg, UNK
     Dates: start: 20060223, end: 20110316
  21. SPIRONOLACTONE [Concomitant]
     Indication: CROHN^S DISEASE
     Dosage: 50 mg, UNK
     Dates: start: 20061229, end: 20100914
  22. CORTIFOAM [Concomitant]
     Dosage: UNK UNK, HS
     Route: 054
     Dates: start: 20081124, end: 20090216
  23. SUMATRIPTAN [Concomitant]
     Dosage: 50 mg, UNK
     Dates: start: 20090407
  24. NU-IRON [Concomitant]
  25. CALCIUM W/VITAMIN D NOS [Concomitant]
  26. VITAMIN E [Concomitant]
  27. PPD DISPOSABLE [Concomitant]
  28. MVI [Concomitant]
     Dosage: daily
     Dates: start: 20090401
  29. LACTINEX [Concomitant]
     Dosage: 1 packet TID
     Dates: start: 20090401

REACTIONS (11)
  - Transverse sinus thrombosis [None]
  - Cerebrovascular accident [None]
  - Cerebral thrombosis [None]
  - Tinnitus [None]
  - Crohn^s disease [None]
  - Headache [None]
  - Venous stenosis [None]
  - Pain [None]
  - General physical health deterioration [None]
  - Anxiety [None]
  - Emotional distress [None]
